FAERS Safety Report 12995570 (Version 1)
Quarter: 2016Q4

REPORT INFORMATION
  Report Type: Spontaneous
  Country: US (occurrence: US)
  Receive Date: 20161202
  Receipt Date: 20161202
  Transmission Date: 20170207
  Serious: Yes (Other)
  Sender: FDA-Public Use
  Company Number: US-GLAXOSMITHKLINE-US2016178768

PATIENT
  Age: 79 Year
  Sex: Male

DRUGS (11)
  1. TRICOR [Concomitant]
     Active Substance: FENOFIBRATE
  2. AMARYL [Concomitant]
     Active Substance: GLIMEPIRIDE
  3. COUMADIN [Concomitant]
     Active Substance: WARFARIN SODIUM
  4. IRON [Concomitant]
     Active Substance: IRON
  5. POTASSIUM [Concomitant]
     Active Substance: POTASSIUM
  6. BUMEX [Concomitant]
     Active Substance: BUMETANIDE
  7. BREO ELLIPTA [Suspect]
     Active Substance: FLUTICASONE FUROATE\VILANTEROL TRIFENATATE
     Indication: CHRONIC OBSTRUCTIVE PULMONARY DISEASE
     Dosage: 1 PUFF(S), QD
  8. SOTALOL HYDROCHLORIDE. [Concomitant]
     Active Substance: SOTALOL HYDROCHLORIDE
  9. LIPITOR [Concomitant]
     Active Substance: ATORVASTATIN CALCIUM
  10. DIGOXIN. [Concomitant]
     Active Substance: DIGOXIN
  11. MEXILETINE [Concomitant]
     Active Substance: MEXILETINE

REACTIONS (1)
  - Atrial fibrillation [Unknown]

NARRATIVE: CASE EVENT DATE: 20161114
